FAERS Safety Report 13290429 (Version 1)
Quarter: 2017Q1

REPORT INFORMATION
  Report Type: Spontaneous
  Country: PT (occurrence: PT)
  Receive Date: 20170302
  Receipt Date: 20170302
  Transmission Date: 20170428
  Serious: Yes (Hospitalization)
  Sender: FDA-Public Use
  Company Number: PT-PFIZER INC-2017087187

PATIENT
  Age: 51 Year
  Sex: Female

DRUGS (1)
  1. FAULTENOCAN [Suspect]
     Active Substance: IRINOTECAN HYDROCHLORIDE
     Indication: RECTAL CANCER
     Dosage: 320.4 MG, CYCLIC
     Route: 042
     Dates: start: 20170210, end: 20170210

REACTIONS (2)
  - Hyperhidrosis [Recovered/Resolved]
  - Myoclonus [Recovered/Resolved]

NARRATIVE: CASE EVENT DATE: 20170210
